FAERS Safety Report 6741973-1 (Version None)
Quarter: 2010Q2

REPORT INFORMATION
  Report Type: 
  Country: None (occurrence: None)
  Receive Date: 20100524
  Receipt Date: 20100511
  Transmission Date: 20101027
  Serious: Yes (Life-Threatening)
  Sender: FDA-Public Use
  Company Number: 591444

PATIENT
  Age: 32 Year
  Sex: Female

DRUGS (4)
  1. PACLITAXEL [Suspect]
     Indication: ADENOCARCINOMA PANCREAS
     Dosage: 80 MILLIGRAMS, INTRAVENOUS
     Route: 042
     Dates: start: 20100427, end: 20100427
  2. POLARAMINE [Concomitant]
  3. METHYLPREDNISOLONE [Concomitant]
  4. RANITIDINE [Concomitant]

REACTIONS (3)
  - ANAPHYLACTOID SHOCK [None]
  - CHEST PAIN [None]
  - TACHYCARDIA [None]
